FAERS Safety Report 13164967 (Version 1)
Quarter: 2017Q1

REPORT INFORMATION
  Report Type: Spontaneous
  Country: US (occurrence: US)
  Receive Date: 20170130
  Receipt Date: 20170130
  Transmission Date: 20170428
  Serious: No
  Sender: FDA-Public Use
  Company Number: US-ALLERGAN-1666753US

PATIENT
  Age: 61 Year
  Sex: Female

DRUGS (2)
  1. SYNTHROID [Concomitant]
     Active Substance: LEVOTHYROXINE SODIUM
     Indication: HYPOTHYROIDISM
     Dosage: .77 MG, UNK
     Dates: start: 2006
  2. ALORA [Suspect]
     Active Substance: ESTRADIOL
     Indication: MENOPAUSE
     Dosage: 0.05 MG, QD
     Route: 062
     Dates: start: 201606, end: 201607

REACTIONS (3)
  - Hot flush [Recovered/Resolved]
  - Product substitution issue [None]
  - Product adhesion issue [Unknown]

NARRATIVE: CASE EVENT DATE: 201606
